FAERS Safety Report 6086514-X (Version None)
Quarter: 2009Q1

REPORT INFORMATION
  Report Type: 
  Country: None (occurrence: None)
  Receive Date: 20090223
  Receipt Date: 20090213
  Transmission Date: 20090719
  Serious: Yes (Hospitalization)
  Sender: FDA-Public Use
  Company Number: US-JNJFOC-20090204083

PATIENT
  Age: 16 Year
  Sex: Female

DRUGS (5)
  1. TOPAMAX [Suspect]
     Route: 048
  2. TOPAMAX [Suspect]
     Indication: CONVULSION
     Route: 048
  3. DEPAKENE [Concomitant]
     Indication: CONVULSION
  4. LAMICTAL [Concomitant]
     Indication: CONVULSION
  5. LYRICA [Concomitant]
     Indication: CONVULSION

REACTIONS (1)
  - ATELECTASIS [None]
